FAERS Safety Report 8544189-1 (Version None)
Quarter: 2012Q3

REPORT INFORMATION
  Report Type: 
  Country: None (occurrence: None)
  Receive Date: 20120718
  Receipt Date: 20120718
  Transmission Date: 20120928
  Serious: Yes (Other)
  Sender: FDA-Public Use
  Company Number: None

PATIENT
  Sex: Female

DRUGS (1)
  1. OXYCODONE HCL [Suspect]
     Indication: PROCEDURAL PAIN
     Dosage: 5MG EVERY 4 HOURS ORALLY
     Route: 048
     Dates: start: 20120707

REACTIONS (2)
  - DRUG INEFFECTIVE [None]
  - PRODUCT FORMULATION ISSUE [None]
